FAERS Safety Report 25905297 (Version 1)
Quarter: 2025Q4

REPORT INFORMATION
  Report Type: Spontaneous
  Country: US (occurrence: US)
  Receive Date: 20251010
  Receipt Date: 20251010
  Transmission Date: 20260118
  Serious: Yes (Other)
  Sender: UCB
  Company Number: US-UCBSA-2025063796

PATIENT
  Age: 29 Year
  Sex: Female

DRUGS (1)
  1. KEPPRA [Suspect]
     Active Substance: LEVETIRACETAM
     Indication: Epilepsy
     Dosage: 3000 MILLIGRAM, UNK

REACTIONS (3)
  - Epilepsy [Unknown]
  - Loss of personal independence in daily activities [Unknown]
  - Inability to afford medication [Unknown]
